FAERS Safety Report 9074864 (Version 1)
Quarter: 2013Q1

REPORT INFORMATION
  Report Type: Report from Study
  Country: US (occurrence: US)
  Receive Date: 20130129
  Receipt Date: 20130129
  Transmission Date: 20140127
  Serious: No
  Sender: FDA-Public Use
  Company Number: US-ABBOTT-12P-163-0936952-00

PATIENT
  Age: 54 Year
  Sex: Male

DRUGS (7)
  1. HUMIRA 40 MG/0.8 ML PEN [Suspect]
     Indication: CROHN^S DISEASE
     Dates: start: 20120512
  2. CYMBALTA [Concomitant]
     Indication: PAIN
     Dosage: 60MG DAILY
  3. LEVOTHYROXINE [Concomitant]
     Indication: THYROID OPERATION
  4. GLIMEPIRIDE [Concomitant]
     Indication: TYPE 2 DIABETES MELLITUS
     Dosage: 4MG DAILY
  5. LEVEMIR [Concomitant]
     Indication: TYPE 2 DIABETES MELLITUS
     Dosage: DAILY
  6. RANITIDINE [Concomitant]
     Indication: GASTROOESOPHAGEAL REFLUX DISEASE
  7. LORTAB [Concomitant]
     Indication: PAIN
     Dosage: 10/500MG FOUR TIMES A DAY

REACTIONS (1)
  - Testicular pain [Not Recovered/Not Resolved]
